FAERS Safety Report 8184285-4 (Version None)
Quarter: 2012Q1

REPORT INFORMATION
  Report Type: 
  Country: None (occurrence: None)
  Receive Date: 20120305
  Receipt Date: 20120229
  Transmission Date: 20120608
  Serious: Yes (Death)
  Sender: FDA-Public Use
  Company Number: JP-SANOFI-AVENTIS-2011SA050614

PATIENT
  Age: 63 Year
  Sex: Male
  Weight: 52 kg

DRUGS (26)
  1. OXALIPLATIN [Suspect]
     Route: 041
     Dates: start: 20110610
  2. CAPECITABINE [Suspect]
     Indication: COLON CANCER
     Dosage: FREQUENCY: BID
     Route: 048
     Dates: start: 20110427, end: 20110725
  3. DECADRON [Concomitant]
     Indication: PREMEDICATION
     Route: 041
     Dates: start: 20110427, end: 20110722
  4. DECADRON [Concomitant]
     Route: 048
     Dates: start: 20110428, end: 20110504
  5. DECADRON [Concomitant]
     Route: 048
     Dates: start: 20110428, end: 20110504
  6. EMEND [Concomitant]
     Indication: PROPHYLAXIS
     Dosage: 125-80-125-80-125-80-125-80-125-80MG
     Route: 048
     Dates: start: 20110427, end: 20110724
  7. AMOBAN [Concomitant]
     Indication: INSOMNIA
     Route: 048
     Dates: start: 20110426
  8. OXALIPLATIN [Suspect]
     Route: 041
     Dates: start: 20110520
  9. AVASTIN [Concomitant]
     Indication: COLON CANCER
     Route: 041
     Dates: start: 20110427, end: 20110610
  10. KYTRIL [Concomitant]
     Indication: PROPHYLAXIS
     Route: 041
     Dates: start: 20110427, end: 20110722
  11. DECADRON [Concomitant]
     Indication: PROPHYLAXIS
     Route: 041
     Dates: start: 20110427, end: 20110722
  12. FAMOTIDINE [Concomitant]
     Route: 048
     Dates: start: 20110427
  13. KYTRIL [Concomitant]
     Indication: PREMEDICATION
     Route: 041
     Dates: start: 20110427, end: 20110722
  14. FENTANYL [Concomitant]
     Dosage: 8.4-4.2-2.1-4.2-2.1-8.4 MG
     Dates: start: 20110428, end: 20110726
  15. PRAVASTATIN SODIUM [Concomitant]
     Indication: HYPERLIPIDAEMIA
     Route: 048
     Dates: start: 20110701, end: 20110726
  16. OXALIPLATIN [Suspect]
     Route: 041
     Dates: start: 20110722, end: 20110722
  17. CHLOR-TRIMETON [Concomitant]
     Indication: PREMEDICATION
     Route: 041
     Dates: start: 20110427, end: 20110722
  18. KYTRIL [Concomitant]
     Route: 048
     Dates: start: 20110428, end: 20110428
  19. KYTRIL [Concomitant]
     Route: 048
     Dates: start: 20110428, end: 20110428
  20. CANDESARTAN CILEXETIL [Concomitant]
     Indication: HYPERTENSION
     Route: 048
     Dates: start: 20110520, end: 20110726
  21. OXALIPLATIN [Suspect]
     Indication: COLON CANCER
     Route: 041
     Dates: start: 20110427
  22. HIRUDOID [Concomitant]
     Dates: start: 20110427
  23. MAGNESIUM OXIDE [Concomitant]
     Route: 048
     Dates: start: 20110426
  24. SAHNE [Concomitant]
     Dates: start: 20110426
  25. MOTILIUM [Concomitant]
     Indication: PROPHYLAXIS
     Route: 048
     Dates: start: 20110428, end: 20110504
  26. WHITE PETROLATUM [Concomitant]
     Dates: start: 20110426

REACTIONS (1)
  - DEATH [None]
